FAERS Safety Report 11373512 (Version 1)
Quarter: 2015Q3

REPORT INFORMATION
  Report Type: Spontaneous
  Country: JP (occurrence: None)
  Receive Date: 20150811
  Receipt Date: 20150811
  Transmission Date: 20151125
  Serious: Yes (Hospitalization)
  Sender: FDA-Public Use
  Company Number: 2015FE02648

PATIENT
  Age: 8 Decade
  Sex: Male

DRUGS (1)
  1. GONAX (DEGARELIX) POWDER AND SOLVENT FOR SOLUTION FOR INJECTION [Suspect]
     Active Substance: DEGARELIX
     Indication: PROSTATE CANCER
     Dosage: 120 MG, ONCE/SINGLE
     Route: 058
     Dates: start: 20150728, end: 20150728

REACTIONS (2)
  - Peritonitis [None]
  - Intentional product use issue [None]

NARRATIVE: CASE EVENT DATE: 20150728
